FAERS Safety Report 4727335-7 (Version None)
Quarter: 2005Q3

REPORT INFORMATION
  Report Type: 
  Country: None (occurrence: None)
  Receive Date: 20050727
  Receipt Date: 20050727
  Transmission Date: 20060218
  Serious: Yes (Hospitalization)
  Sender: FDA-Public Use
  Company Number: None

PATIENT
  Age: 28 Year
  Sex: Female
  Weight: 68.0396 kg

DRUGS (11)
  1. AMPHOTERICIN B [Suspect]
     Indication: FUNGAL INFECTION
     Dosage: 0.7 MG/KG/DAY IV
     Route: 042
     Dates: start: 20050404, end: 20050407
  2. AZITHROMYCIN [Concomitant]
  3. FLUCONAZOLE [Concomitant]
  4. ATOVAQUONE [Concomitant]
  5. PREVACID [Concomitant]
  6. ALBUTEROL [Concomitant]
  7. OXYCODONE [Concomitant]
  8. MORPHINE [Concomitant]
  9. TYLENOL (CAPLET) [Concomitant]
  10. SEPTRA [Concomitant]
  11. PHENERGAN HCL [Concomitant]

REACTIONS (5)
  - ANION GAP INCREASED [None]
  - BLOOD CREATININE INCREASED [None]
  - LABORATORY TEST ABNORMAL [None]
  - RENAL FAILURE [None]
  - RENAL TUBULAR ACIDOSIS [None]
